FAERS Safety Report 12908494 (Version 4)
Quarter: 2016Q4

REPORT INFORMATION
  Report Type: Report from Study
  Country: None (occurrence: ES)
  Receive Date: 20161103
  Receipt Date: 20161111
  Transmission Date: 20170207
  Serious: Yes (Death, Hospitalization)
  Sender: FDA-Public Use
  Company Number: ES-ABBVIE-16P-144-1769485-00

PATIENT
  Age: 40 Year
  Sex: Male

DRUGS (2)
  1. DUODOPA [Suspect]
     Active Substance: CARBIDOPA\LEVODOPA
     Indication: PARKINSON^S DISEASE
     Dosage: MD: 7 ML, CD: 4.3 ML/H, ED: 2.5 ML
     Route: 050
     Dates: start: 20150716
  2. DUODOPA [Suspect]
     Active Substance: CARBIDOPA\LEVODOPA
     Dosage: MD: 7 ML, CD: 4.3 ML/H, ED: 2.5 ML
     Route: 050
     Dates: end: 20161030

REACTIONS (5)
  - Cardiac arrest [Fatal]
  - Pyrexia [Recovered/Resolved]
  - Therapy cessation [Unknown]
  - Neuroleptic malignant syndrome [Fatal]
  - Device use issue [Unknown]

NARRATIVE: CASE EVENT DATE: 20161028
